FAERS Safety Report 4931004-8 (Version None)
Quarter: 2006Q1

REPORT INFORMATION
  Report Type: 
  Country: None (occurrence: None)
  Receive Date: 20060227
  Receipt Date: 20060216
  Transmission Date: 20060701
  Serious: Yes (Other)
  Sender: FDA-Public Use
  Company Number: 2006023920

PATIENT
  Sex: Male

DRUGS (3)
  1. DRAMAMINE [Suspect]
     Indication: NAUSEA
     Dosage: 3 TABLETS WITHIN A FEW HOURS; ORAL
     Route: 048
     Dates: start: 20060215, end: 20060215
  2. BUPROPION HYDROCHLORIDE [Suspect]
     Indication: STRESS
     Dosage: 150 MG, DAILY
     Dates: start: 20030101
  3. CETIRIZINE HCL [Concomitant]

REACTIONS (2)
  - HALLUCINATION [None]
  - VOMITING [None]
